FAERS Safety Report 8296709 (Version 3)
Quarter: 2012Q4

REPORT INFORMATION
  Report Type: 
  Country: US (occurrence: US)
  Receive Date: 20111216
  Receipt Date: 20121218
  Transmission Date: 20130627
  Serious: No
  Sender: FDA-Public Use
  Company Number: US-BRISTOL-MYERS SQUIBB COMPANY-15718513

PATIENT
  Age: 19 Year
  Sex: Female
  Weight: 51.7 kg

DRUGS (33)
  1. ABILIFY [Suspect]
     Indication: DEPRESSION
     Dosage: 1/2tab at bedtime. Dose increase to 10 mg in 2006 and further to 15 mg in 2007
     Dates: start: 2005
  2. ABILIFY [Suspect]
     Indication: SCHIZOPHRENIA
     Dosage: 1/2tab at bedtime. Dose increase to 10 mg in 2006 and further to 15 mg in 2007
     Dates: start: 2005
  3. ABILIFY [Suspect]
     Indication: ANXIETY
     Dosage: 1/2tab at bedtime. Dose increase to 10 mg in 2006 and further to 15 mg in 2007
     Dates: start: 2005
  4. BUSPAR [Suspect]
     Route: 048
  5. LENALIDOMIDE [Suspect]
     Route: 048
     Dates: start: 20120208, end: 20120218
  6. VENTOLIN [Concomitant]
     Dates: start: 20120426
  7. CYTOMEL [Concomitant]
     Dates: start: 20120412
  8. SYNTHROID [Concomitant]
     Dates: start: 20120412
  9. LASIX [Concomitant]
     Dates: start: 20120315
  10. PROTONIX [Concomitant]
  11. ATIVAN [Concomitant]
  12. OXYCODONE [Concomitant]
  13. AMBIEN [Concomitant]
  14. ZOFRAN [Concomitant]
  15. EPOGEN [Concomitant]
  16. FOSRENOL [Concomitant]
  17. ZOLOFT [Concomitant]
  18. ZEMPLAR [Concomitant]
  19. TRILEPTAL [Concomitant]
     Dosage: 1/2tab 1df= 300 unit nos 3 per day
  20. GUANFACINE HCL [Concomitant]
     Dosage: 1/2tab,1tab at bedtime.
0.5mg, twice daily
     Route: 048
  21. CLONAZEPAM [Concomitant]
     Dosage: 0.5mg 1 tab at bedtime for 2-3days. 1 mg 2 per day,3X1dy
     Route: 048
  22. TENEX [Concomitant]
  23. PROZAC [Concomitant]
     Dosage: In morning.
  24. NEURONTIN [Concomitant]
     Route: 048
  25. BACLOFEN [Concomitant]
     Dosage: 10mg twice a day,20mg 3x1dy
  26. HYDROXYCHLOROQUINE [Concomitant]
     Dosage: 2x1dy
  27. VICODIN [Concomitant]
     Dosage: 1 df= 5mg-500mg 1/2-1 tabs every 6 hrs
     Route: 048
  28. IBUPROFEN [Concomitant]
     Route: 048
  29. EFFEXOR XR [Concomitant]
     Dosage: at bedtime
  30. KLONOPIN [Concomitant]
  31. GUAIFENESIN [Concomitant]
  32. RITALIN [Concomitant]
  33. TEGRETOL [Concomitant]

REACTIONS (12)
  - Dystonia [Recovered/Resolved]
  - Pain [Unknown]
  - Dysphagia [Unknown]
  - Fall [Unknown]
  - Decreased appetite [Unknown]
  - Headache [Unknown]
  - Ear pain [Unknown]
  - Oropharyngeal pain [Unknown]
  - Cough [Unknown]
  - Hypersensitivity [Unknown]
  - Sedation [Unknown]
  - Dizziness [Unknown]
